FAERS Safety Report 4345947-X (Version None)
Quarter: 2004Q2

REPORT INFORMATION
  Report Type: 
  Country: None (occurrence: None)
  Receive Date: 20040423
  Receipt Date: 20040423
  Transmission Date: 20050107
  Serious: Yes (Other)
  Sender: FDA-Public Use
  Company Number: None

PATIENT
  Sex: Female
  Weight: 68 kg

DRUGS (4)
  1. IFEX [Suspect]
     Indication: CARCINOMA
     Dosage: 4 GM DAILY X 4 IV
     Route: 042
     Dates: start: 20040223, end: 20040226
  2. MESNA [Suspect]
     Dosage: 4 GM DAILY X 4 IV
     Route: 042
     Dates: start: 20040222, end: 20040226
  3. ANZEMENT [Concomitant]
  4. DEXAMETHASONE [Concomitant]

REACTIONS (2)
  - EXTRAPYRAMIDAL DISORDER [None]
  - FEELING JITTERY [None]
